FAERS Safety Report 24961914 (Version 2)
Quarter: 2025Q1

REPORT INFORMATION
  Report Type: Spontaneous
  Country: US (occurrence: US)
  Receive Date: 20250212
  Receipt Date: 20250317
  Transmission Date: 20250409
  Serious: No
  Sender: PFIZER
  Company Number: US-PFIZER INC-202500030371

PATIENT
  Age: 11 Year
  Sex: Female
  Weight: 31.746 kg

DRUGS (1)
  1. NGENLA [Suspect]
     Active Substance: SOMATROGON-GHLA
     Indication: Short stature

REACTIONS (1)
  - Injection site pain [Not Recovered/Not Resolved]
